FAERS Safety Report 25573787 (Version 1)
Quarter: 2025Q3

REPORT INFORMATION
  Report Type: Spontaneous
  Country: EU (occurrence: EU)
  Receive Date: 20250717
  Receipt Date: 20250717
  Transmission Date: 20251020
  Serious: Yes (Life-Threatening)
  Sender: MYLAN
  Company Number: None

PATIENT
  Age: 81 Year
  Sex: Male
  Weight: 66 kg

DRUGS (28)
  1. REMIFENTANIL [Suspect]
     Active Substance: REMIFENTANIL
     Indication: Induction of anaesthesia
  2. REMIFENTANIL [Suspect]
     Active Substance: REMIFENTANIL
     Route: 042
  3. REMIFENTANIL [Suspect]
     Active Substance: REMIFENTANIL
     Route: 042
  4. REMIFENTANIL [Suspect]
     Active Substance: REMIFENTANIL
  5. DEXAMETHASONE [Suspect]
     Active Substance: DEXAMETHASONE
     Indication: Induction of anaesthesia
  6. DEXAMETHASONE [Suspect]
     Active Substance: DEXAMETHASONE
     Route: 042
  7. DEXAMETHASONE [Suspect]
     Active Substance: DEXAMETHASONE
     Route: 042
  8. DEXAMETHASONE [Suspect]
     Active Substance: DEXAMETHASONE
  9. PROPOFOL [Suspect]
     Active Substance: PROPOFOL
     Indication: Induction of anaesthesia
  10. PROPOFOL [Suspect]
     Active Substance: PROPOFOL
     Route: 042
  11. PROPOFOL [Suspect]
     Active Substance: PROPOFOL
     Route: 042
  12. PROPOFOL [Suspect]
     Active Substance: PROPOFOL
  13. KETAMINE [Suspect]
     Active Substance: KETAMINE
     Indication: Induction of anaesthesia
  14. KETAMINE [Suspect]
     Active Substance: KETAMINE
     Route: 042
  15. KETAMINE [Suspect]
     Active Substance: KETAMINE
     Route: 042
  16. KETAMINE [Suspect]
     Active Substance: KETAMINE
  17. TRACRIUM [Suspect]
     Active Substance: ATRACURIUM BESYLATE
     Indication: Induction of anaesthesia
  18. TRACRIUM [Suspect]
     Active Substance: ATRACURIUM BESYLATE
     Route: 042
  19. TRACRIUM [Suspect]
     Active Substance: ATRACURIUM BESYLATE
     Route: 042
  20. TRACRIUM [Suspect]
     Active Substance: ATRACURIUM BESYLATE
  21. AUGMENTIN [Suspect]
     Active Substance: AMOXICILLIN\CLAVULANATE POTASSIUM
     Indication: Antibiotic prophylaxis
  22. AUGMENTIN [Suspect]
     Active Substance: AMOXICILLIN\CLAVULANATE POTASSIUM
     Route: 042
  23. AUGMENTIN [Suspect]
     Active Substance: AMOXICILLIN\CLAVULANATE POTASSIUM
     Route: 042
  24. AUGMENTIN [Suspect]
     Active Substance: AMOXICILLIN\CLAVULANATE POTASSIUM
  25. NOREPINEPHRINE BITARTRATE [Concomitant]
     Active Substance: NOREPINEPHRINE BITARTRATE
     Indication: Anaesthesia
  26. NOREPINEPHRINE BITARTRATE [Concomitant]
     Active Substance: NOREPINEPHRINE BITARTRATE
     Route: 065
  27. NOREPINEPHRINE BITARTRATE [Concomitant]
     Active Substance: NOREPINEPHRINE BITARTRATE
     Route: 065
  28. NOREPINEPHRINE BITARTRATE [Concomitant]
     Active Substance: NOREPINEPHRINE BITARTRATE

REACTIONS (1)
  - Anaphylactic shock [Recovered/Resolved]

NARRATIVE: CASE EVENT DATE: 20250623
